FAERS Safety Report 20617993 (Version 3)
Quarter: 2022Q4

REPORT INFORMATION
  Report Type: Spontaneous
  Country: GR (occurrence: GR)
  Receive Date: 20220321
  Receipt Date: 20221027
  Transmission Date: 20230113
  Serious: Yes (Other)
  Sender: FDA-Public Use
  Company Number: GR-BAYER-2022A028323

PATIENT
  Age: 33 Year
  Sex: Male

DRUGS (21)
  1. METHYLPREDNISOLONE SODIUM SUCCINATE [Suspect]
     Active Substance: METHYLPREDNISOLONE SODIUM SUCCINATE
     Indication: Conjunctival hyperaemia
     Dosage: 1 GR/D
     Route: 042
  2. METHYLPREDNISOLONE SODIUM SUCCINATE [Suspect]
     Active Substance: METHYLPREDNISOLONE SODIUM SUCCINATE
     Indication: Lacrimation increased
  3. METHYLPREDNISOLONE SODIUM SUCCINATE [Suspect]
     Active Substance: METHYLPREDNISOLONE SODIUM SUCCINATE
     Indication: Nasal congestion
  4. METHYLPREDNISOLONE SODIUM SUCCINATE [Suspect]
     Active Substance: METHYLPREDNISOLONE SODIUM SUCCINATE
     Indication: Drooping shoulder syndrome
  5. METHYLPREDNISOLONE SODIUM SUCCINATE [Suspect]
     Active Substance: METHYLPREDNISOLONE SODIUM SUCCINATE
     Indication: Eyelid oedema
  6. TOPIRAMATE [Suspect]
     Active Substance: TOPIRAMATE
     Indication: Conjunctival hyperaemia
     Route: 048
  7. TOPIRAMATE [Suspect]
     Active Substance: TOPIRAMATE
     Indication: Lacrimation increased
  8. TOPIRAMATE [Suspect]
     Active Substance: TOPIRAMATE
     Indication: Nasal congestion
  9. TOPIRAMATE [Suspect]
     Active Substance: TOPIRAMATE
     Indication: Drooping shoulder syndrome
  10. TOPIRAMATE [Suspect]
     Active Substance: TOPIRAMATE
     Indication: Swelling of eyelid
  11. GABAPENTIN [Suspect]
     Active Substance: GABAPENTIN
     Indication: Conjunctival hyperaemia
     Route: 048
  12. GABAPENTIN [Suspect]
     Active Substance: GABAPENTIN
     Indication: Lacrimation increased
  13. GABAPENTIN [Suspect]
     Active Substance: GABAPENTIN
     Indication: Nasal congestion
  14. GABAPENTIN [Suspect]
     Active Substance: GABAPENTIN
     Indication: Drooping shoulder syndrome
  15. GABAPENTIN [Suspect]
     Active Substance: GABAPENTIN
     Indication: Swelling of eyelid
  16. BETAFERON [Suspect]
     Active Substance: INTERFERON BETA-1B
     Indication: Multiple sclerosis
     Dosage: UNK
  17. DULOXETINE [Suspect]
     Active Substance: DULOXETINE
     Indication: Conjunctival hyperaemia
     Route: 048
  18. DULOXETINE [Suspect]
     Active Substance: DULOXETINE
     Indication: Lacrimation increased
  19. DULOXETINE [Suspect]
     Active Substance: DULOXETINE
     Indication: Nasal congestion
  20. DULOXETINE [Suspect]
     Active Substance: DULOXETINE
     Indication: Drooping shoulder syndrome
  21. DULOXETINE [Suspect]
     Active Substance: DULOXETINE
     Indication: Swelling of eyelid

REACTIONS (4)
  - Psoriasis [Unknown]
  - Depression [Recovered/Resolved]
  - Treatment noncompliance [Unknown]
  - Product administration interrupted [Recovered/Resolved]
